FAERS Safety Report 6160168-6 (Version None)
Quarter: 2009Q2

REPORT INFORMATION
  Report Type: 
  Country: None (occurrence: None)
  Receive Date: 20090420
  Receipt Date: 20090410
  Transmission Date: 20091009
  Serious: Yes (Death)
  Sender: FDA-Public Use
  Company Number: A0779243A

PATIENT
  Age: 81 Year
  Sex: Male
  Weight: 112.7 kg

DRUGS (7)
  1. AVANDIA [Suspect]
     Indication: DIABETES MELLITUS
     Dosage: 8MG PER DAY
     Route: 048
     Dates: start: 19990702, end: 20040901
  2. METFORMIN HCL [Concomitant]
  3. AMARYL [Concomitant]
  4. CELEBREX [Concomitant]
  5. ALTACE [Concomitant]
  6. AMBIEN [Concomitant]
  7. ALBUTEROL [Concomitant]

REACTIONS (3)
  - CARDIAC FAILURE CONGESTIVE [None]
  - CARDIAC VALVE DISEASE [None]
  - DEATH [None]
